FAERS Safety Report 12548256 (Version 1)
Quarter: 2016Q3

REPORT INFORMATION
  Report Type: Spontaneous
  Country: IT (occurrence: IT)
  Receive Date: 20160712
  Receipt Date: 20160712
  Transmission Date: 20161109
  Serious: Yes (Hospitalization)
  Sender: FDA-Public Use
  Company Number: IT-JNJFOC-20160705293

PATIENT
  Age: 47 Year
  Sex: Female
  Weight: 65 kg

DRUGS (1)
  1. SIMPONI [Suspect]
     Active Substance: GOLIMUMAB
     Indication: COLITIS ULCERATIVE
     Route: 058
     Dates: start: 20160509, end: 20160519

REACTIONS (3)
  - Pyrexia [Recovered/Resolved with Sequelae]
  - Acute generalised exanthematous pustulosis [Recovered/Resolved with Sequelae]
  - Aphthous ulcer [Recovered/Resolved with Sequelae]

NARRATIVE: CASE EVENT DATE: 20160519
